FAERS Safety Report 9705807 (Version 2)
Quarter: 2013Q4

REPORT INFORMATION
  Report Type: Spontaneous
  Country: US (occurrence: US)
  Receive Date: 20131122
  Receipt Date: 20131122
  Transmission Date: 20140711
  Serious: Yes (Other)
  Sender: FDA-Public Use
  Company Number: US-GILEAD-2008-0017770

PATIENT
  Sex: Female
  Weight: 68.38 kg

DRUGS (10)
  1. LETAIRIS [Suspect]
     Indication: PULMONARY ARTERIAL HYPERTENSION
     Route: 048
     Dates: start: 20080621
  2. REVATIO [Concomitant]
     Route: 048
  3. ALDACTONE [Concomitant]
     Route: 048
  4. LASIX [Concomitant]
     Route: 048
  5. SYNTHROID [Concomitant]
     Route: 048
  6. COUMADIN [Concomitant]
     Route: 048
  7. CITRACAL + D [Concomitant]
     Route: 048
  8. MULTIVITAMIN [Concomitant]
     Route: 048
  9. VITAMIN B-6 [Concomitant]
     Dosage: AS DIRECTED
     Route: 048
  10. VITAMIN C [Concomitant]
     Route: 048

REACTIONS (1)
  - Oedema [None]
